FAERS Safety Report 10515084 (Version 1)
Quarter: 2014Q4

REPORT INFORMATION
  Report Type: Spontaneous
  Country: US (occurrence: US)
  Receive Date: 20141014
  Receipt Date: 20141014
  Transmission Date: 20150528
  Serious: Yes (Other)
  Sender: FDA-Public Use
  Company Number: US-CIPLA LTD.-2014US01509

PATIENT

DRUGS (6)
  1. PANITUMUMAB [Suspect]
     Active Substance: PANITUMUMAB
     Indication: GALLBLADDER CANCER
  2. GEMCITABINE [Suspect]
     Active Substance: GEMCITABINE\GEMCITABINE HYDROCHLORIDE
     Indication: BILE DUCT CANCER
     Dosage: 1000 MG/M2 AS DOSE RATE INFUSION AT 10 MG/M2/MIN EVERY 28-DAY CYCLE
  3. GEMCITABINE [Suspect]
     Active Substance: GEMCITABINE\GEMCITABINE HYDROCHLORIDE
     Indication: GALLBLADDER CANCER
  4. OXALIPLATIN. [Suspect]
     Active Substance: OXALIPLATIN
     Indication: GALLBLADDER CANCER
  5. OXALIPLATIN. [Suspect]
     Active Substance: OXALIPLATIN
     Indication: BILE DUCT CANCER
     Dosage: 85 MG/M2 OVER 2 HOURS, ON DAYS 1 AND 15 OF EVERY 28-DAY CYCLE
  6. PANITUMUMAB [Suspect]
     Active Substance: PANITUMUMAB
     Indication: BILE DUCT CANCER
     Dosage: 6MG/KG OVER 1 HOUR EVERY 28-DAY CYCLE

REACTIONS (1)
  - Performance status decreased [Unknown]
